FAERS Safety Report 18981680 (Version 2)
Quarter: 2021Q1

REPORT INFORMATION
  Report Type: Spontaneous
  Country: US (occurrence: US)
  Receive Date: 20210308
  Receipt Date: 20210330
  Transmission Date: 20210420
  Serious: Yes (Life-Threatening, Hospitalization)
  Sender: FDA-Public Use
  Company Number: US-TEVA-2021-US-1885277

PATIENT
  Age: 59 Year
  Sex: Female

DRUGS (14)
  1. MITOMYCIN. [Concomitant]
     Active Substance: MITOMYCIN
     Indication: METASTASES TO LIVER
     Dosage: EMULSION
     Route: 065
  2. OCTREOTIDE. [Suspect]
     Active Substance: OCTREOTIDE
     Indication: CARCINOID CRISIS
     Dosage: INFUSION
     Route: 065
  3. OCTREOTIDE. [Suspect]
     Active Substance: OCTREOTIDE
     Dosage: INFUSION
     Route: 065
  4. OCTREOTIDE. [Suspect]
     Active Substance: OCTREOTIDE
     Indication: PROPHYLAXIS
     Dosage: OCTREOTIDE DEPOT INJECTION [INITIAL DOSE NOT STATED], WHICH WAS ESCALATED TO 60MG/MONTH
     Route: 065
  5. MILRINONE [Suspect]
     Active Substance: MILRINONE
     Indication: CARDIOGENIC SHOCK
     Route: 065
  6. OCTREOTIDE. [Suspect]
     Active Substance: OCTREOTIDE
     Indication: VASOCONSTRICTION
     Dosage: INFUSION
     Route: 065
  7. OCTREOTIDE. [Suspect]
     Active Substance: OCTREOTIDE
     Dosage: INFUSION
     Route: 065
  8. OCTREOTIDE. [Suspect]
     Active Substance: OCTREOTIDE
     Dosage: OCTREOTIDE 3TIMES DAILY INJECTIONS WAS PLANNED UNTIL DISCHARGE
     Route: 058
  9. OCTREOTIDE. [Suspect]
     Active Substance: OCTREOTIDE
     Dosage: INTERMITTENT OCTREOTIDE BOLUSES
  10. OCTREOTIDE. [Suspect]
     Active Substance: OCTREOTIDE
     Indication: PROPHYLAXIS
     Dosage: PLANNED FOR 24 HOURS
     Route: 065
  11. VASOPRESSIN. [Suspect]
     Active Substance: VASOPRESSIN
     Indication: CARDIOGENIC SHOCK
     Dosage: INFUSION
     Route: 065
  12. DOBUTAMINE [Suspect]
     Active Substance: DOBUTAMINE HYDROCHLORIDE
     Indication: CARDIOGENIC SHOCK
     Dosage: INFUSION
     Route: 065
  13. NITROPRUSSIDE [Suspect]
     Active Substance: NITROPRUSSIDE
     Indication: CARDIOGENIC SHOCK
     Route: 065
  14. DOXORUBICIN [Concomitant]
     Active Substance: DOXORUBICIN
     Indication: METASTASES TO LIVER
     Dosage: EMULSION
     Route: 065

REACTIONS (8)
  - Cardiogenic shock [Recovered/Resolved]
  - Myopathy [Recovered/Resolved]
  - Respiratory failure [Recovered/Resolved]
  - Carcinoid crisis [Recovered/Resolved]
  - Renal failure [Recovered/Resolved]
  - Drug ineffective [Unknown]
  - Hepatic necrosis [Recovered/Resolved]
  - Acute left ventricular failure [Recovered/Resolved]
